FAERS Safety Report 16182451 (Version 1)
Quarter: 2019Q2

REPORT INFORMATION
  Report Type: Spontaneous
  Country: FR (occurrence: FR)
  Receive Date: 20190410
  Receipt Date: 20190410
  Transmission Date: 20190711
  Serious: Yes (Other)
  Sender: FDA-Public Use
  Company Number: FR-ANIPHARMA-2019-FR-000068

PATIENT
  Age: 58 Year
  Sex: Female

DRUGS (4)
  1. CANDESARTAN. [Suspect]
     Active Substance: CANDESARTAN
     Indication: HYPERTENSION
     Dosage: 8 MG QD
     Route: 048
     Dates: start: 20181227, end: 20190103
  2. ENOXAPARIN [Suspect]
     Active Substance: ENOXAPARIN
     Dosage: 3000 IU QD
     Route: 058
     Dates: start: 20181227
  3. AUGMENTIN [Suspect]
     Active Substance: AMOXICILLIN\CLAVULANATE POTASSIUM
     Dosage: 3 G QD
     Route: 048
     Dates: start: 20181227, end: 20181230
  4. PARACETAMOL [Suspect]
     Active Substance: ACETAMINOPHEN
     Dosage: 3000 MG QD
     Route: 048
     Dates: start: 20181228

REACTIONS (3)
  - Rash maculo-papular [Unknown]
  - Cholestasis [Unknown]
  - Transaminases increased [Unknown]

NARRATIVE: CASE EVENT DATE: 20181230
